FAERS Safety Report 8824766 (Version 1)
Quarter: 2012Q4

REPORT INFORMATION
  Report Type: 
  Country: FR (occurrence: FR)
  Receive Date: 20121004
  Receipt Date: 20121004
  Transmission Date: 20130627
  Serious: Yes (Life-Threatening, Other)
  Sender: FDA-Public Use
  Company Number: FR-PFIZER INC-2012242728

PATIENT

DRUGS (1)
  1. VFEND [Suspect]

REACTIONS (1)
  - Hepatitis fulminant [Unknown]
